FAERS Safety Report 5379724-8 (Version None)
Quarter: 2007Q3

REPORT INFORMATION
  Report Type: 
  Country: None (occurrence: None)
  Receive Date: 20070706
  Receipt Date: 20070628
  Transmission Date: 20080115
  Serious: Yes (Other)
  Sender: FDA-Public Use
  Company Number: PHBS2007BR10191

PATIENT
  Age: 32 Year
  Sex: Female

DRUGS (5)
  1. LEXOTAN [Concomitant]
     Dosage: 1 DF, BID
     Route: 048
     Dates: end: 20070614
  2. RIVOTRIL [Concomitant]
     Dosage: 1 DF, BID
     Route: 048
     Dates: end: 20070614
  3. TEGRETOL [Suspect]
     Indication: DEPRESSION
     Dosage: 200 MG, BID
     Route: 048
     Dates: end: 20070614
  4. TEGRETOL [Suspect]
     Route: 048
     Dates: start: 20070627
  5. EUTHYROX [Concomitant]

REACTIONS (13)
  - ANOREXIA [None]
  - ASTHENIA [None]
  - DEPRESSED MOOD [None]
  - DEPRESSION [None]
  - DIZZINESS [None]
  - DYSARTHRIA [None]
  - FEAR [None]
  - GAIT DISTURBANCE [None]
  - INSOMNIA [None]
  - LETHARGY [None]
  - NERVOUSNESS [None]
  - SWELLING FACE [None]
  - VOMITING [None]
